FAERS Safety Report 8884649 (Version 1)
Quarter: 2012Q4

REPORT INFORMATION
  Report Type: Report from Study
  Country: IT (occurrence: IT)
  Receive Date: 20121102
  Receipt Date: 20121102
  Transmission Date: 20130627
  Serious: No
  Sender: FDA-Public Use
  Company Number: IT-UCBSA-069848

PATIENT
  Age: 38 Year
  Sex: Female
  Weight: 60 kg

DRUGS (6)
  1. VIMPAT [Suspect]
     Indication: EPILEPSY
     Dosage: 50 MG
     Route: 048
     Dates: start: 20120229, end: 20120626
  2. VIMPAT [Suspect]
     Indication: PARTIAL SEIZURES WITH SECONDARY GENERALISATION
     Dosage: 50 MG
     Route: 048
     Dates: start: 20120229, end: 20120626
  3. OXCARBAZEPINE [Concomitant]
     Indication: EPILEPSY
     Route: 048
     Dates: start: 20070612
  4. OXCARBAZEPINE [Concomitant]
     Indication: PARTIAL SEIZURES WITH SECONDARY GENERALISATION
     Route: 048
     Dates: start: 20070612
  5. ZONISAMIDE [Concomitant]
     Indication: EPILEPSY
     Route: 048
     Dates: start: 20070612
  6. ZONISAMIDE [Concomitant]
     Indication: PARTIAL SEIZURES WITH SECONDARY GENERALISATION
     Route: 048
     Dates: start: 20070612

REACTIONS (3)
  - Syncope [Recovered/Resolved]
  - Nausea [Recovered/Resolved]
  - Vomiting [Recovered/Resolved]
